FAERS Safety Report 5586121-9 (Version None)
Quarter: 2007Q4

REPORT INFORMATION
  Report Type: 
  Country: None (occurrence: None)
  Receive Date: 20071205
  Receipt Date: 20061106
  Transmission Date: 20080405
  Serious: Yes (Other)
  Sender: FDA-Public Use
  Company Number: HQWYE804818SEP06

PATIENT
  Age: 43 Year
  Sex: Male

DRUGS (1)
  1. EFFEXOR XR [Suspect]
     Indication: DEPRESSION
     Dosage: 225 MG 1X PER 1 DAY, ORAL
     Route: 048
     Dates: start: 20050101

REACTIONS (3)
  - BLOOD CREATININE INCREASED [None]
  - BLOOD PRESSURE INCREASED [None]
  - BLOOD UREA INCREASED [None]
